FAERS Safety Report 7099098-4 (Version None)
Quarter: 2010Q4

REPORT INFORMATION
  Report Type: 
  Country: None (occurrence: None)
  Receive Date: 20101112
  Receipt Date: 20101103
  Transmission Date: 20110411
  Serious: Yes (Other)
  Sender: FDA-Public Use
  Company Number: A0890724A

PATIENT
  Age: 53 Year
  Sex: Female
  Weight: 69.1 kg

DRUGS (4)
  1. ELTROMBOPAG [Suspect]
     Indication: THROMBOCYTOPENIA
     Dosage: 25MG PER DAY
     Route: 048
     Dates: start: 20091002, end: 20091029
  2. ELTROMBOPAG [Suspect]
     Dosage: 50MG PER DAY
     Route: 048
     Dates: start: 20091030
  3. PEG-INTRON [Suspect]
     Dosage: 120MCG WEEKLY
     Route: 058
     Dates: start: 20091030
  4. REBETOL [Suspect]
     Route: 048
     Dates: start: 20091030

REACTIONS (1)
  - CATARACT [None]
